FAERS Safety Report 6877130-8 (Version None)
Quarter: 2010Q3

REPORT INFORMATION
  Report Type: 
  Country: None (occurrence: None)
  Receive Date: 20100727
  Receipt Date: 20100727
  Transmission Date: 20110219
  Serious: Yes (Other)
  Sender: FDA-Public Use
  Company Number: None

PATIENT
  Age: 59 Year
  Sex: Male
  Weight: 136.0791 kg

DRUGS (1)
  1. SULFAMETHOXAZOLE AND TRIMETHOPRIM [Suspect]
     Indication: CELLULITIS STREPTOCOCCAL
     Dosage: ONE TABLET TWICE DAILY PO
     Route: 048
     Dates: start: 20100707, end: 20100718

REACTIONS (1)
  - HYPERSENSITIVITY [None]
